FAERS Safety Report 5118910-9 (Version None)
Quarter: 2006Q3

REPORT INFORMATION
  Report Type: 
  Country: None (occurrence: None)
  Receive Date: 20060927
  Receipt Date: 20060911
  Transmission Date: 20061208
  Serious: Yes (Other)
  Sender: FDA-Public Use
  Company Number: 2006SP001340

PATIENT
  Age: 63 Year
  Sex: Female

DRUGS (2)
  1. PEG-INTRON [Suspect]
     Indication: HEPATITIS C
     Dosage: 80 MCG;QW;SC
     Route: 058
     Dates: start: 20060131
  2. RIBAVIRIN (S-P) (RIBAVIRIN) [Suspect]
     Indication: HEPATITIS C
     Dosage: 200 MG;QW
     Dates: start: 20060131

REACTIONS (6)
  - BLINDNESS [None]
  - CATARACT OPERATION [None]
  - EYE PAIN [None]
  - MACULOPATHY [None]
  - PNEUMATIC RETINOPEXY [None]
  - RETINAL DETACHMENT [None]
